FAERS Safety Report 4804340-3 (Version None)
Quarter: 2005Q4

REPORT INFORMATION
  Report Type: 
  Country: None (occurrence: None)
  Receive Date: 20051017
  Receipt Date: 20051007
  Transmission Date: 20060501
  Serious: Yes (Hospitalization, Other)
  Sender: FDA-Public Use
  Company Number: 2005139680

PATIENT
  Sex: Female
  Weight: 54.4316 kg

DRUGS (5)
  1. NEURONTIN [Suspect]
     Indication: CONVULSION
     Dosage: 800  MG
     Dates: end: 20050511
  2. DILANTIN [Suspect]
     Indication: CONVULSION
     Dosage: 200 MG (200 MG, 1 IN 1 D)
  3. GABAPENTIN [Suspect]
     Indication: CONVULSION
     Dosage: 1800 MG (600 MG, 3 IN 1 D)
     Dates: end: 20050101
  4. VALIUM [Concomitant]
  5. TRILEPTAL [Concomitant]

REACTIONS (5)
  - CONVULSION [None]
  - DRUG INEFFECTIVE [None]
  - MEMORY IMPAIRMENT [None]
  - TOOTH DISORDER [None]
  - TOOTH LOSS [None]
